FAERS Safety Report 9587065 (Version 2)
Quarter: 2013Q4

REPORT INFORMATION
  Report Type: Spontaneous
  Country: US (occurrence: US)
  Receive Date: 20131003
  Receipt Date: 20131129
  Transmission Date: 20140711
  Serious: No
  Sender: FDA-Public Use
  Company Number: US-PFIZER INC-2013281602

PATIENT
  Sex: Female

DRUGS (2)
  1. ADVIL [Suspect]
     Indication: ARTHRALGIA
     Dosage: UNK, TWO TIMES A DAY
     Route: 048
     Dates: start: 20130928, end: 20130928
  2. ADVIL [Suspect]
     Indication: ARTHRITIS

REACTIONS (1)
  - Drug ineffective [Unknown]
